FAERS Safety Report 20560050 (Version 1)
Quarter: 2022Q1

REPORT INFORMATION
  Report Type: Spontaneous
  Country: US (occurrence: US)
  Receive Date: 20220307
  Receipt Date: 20220307
  Transmission Date: 20220424
  Serious: Yes (Hospitalization, Other)
  Sender: FDA-Public Use
  Company Number: US-PFIZER INC-202200326621

PATIENT
  Age: 88 Year
  Sex: Male
  Weight: 68.49 kg

DRUGS (1)
  1. VYNDAMAX [Suspect]
     Active Substance: TAFAMIDIS
     Indication: Cardiac amyloidosis
     Dosage: 61MG, ONCE A DAY
     Route: 048
     Dates: start: 2019

REACTIONS (2)
  - Dyspnoea [Unknown]
  - Heart rate decreased [Unknown]
